FAERS Safety Report 11753692 (Version 1)
Quarter: 2015Q4

REPORT INFORMATION
  Report Type: Spontaneous
  Country: US (occurrence: None)
  Receive Date: 20151118
  Receipt Date: 20151118
  Transmission Date: 20160304
  Serious: No
  Sender: FDA-Public Use
  Company Number: None

PATIENT
  Sex: Male

DRUGS (3)
  1. LITHIUM. [Suspect]
     Active Substance: LITHIUM
  2. DEPAKOTE [Suspect]
     Active Substance: DIVALPROEX SODIUM
  3. ZYPREXA [Suspect]
     Active Substance: OLANZAPINE

REACTIONS (1)
  - Diabetes mellitus [None]
